FAERS Safety Report 7615728-X (Version None)
Quarter: 2011Q3

REPORT INFORMATION
  Report Type: 
  Country: None (occurrence: None)
  Receive Date: 20110711
  Receipt Date: 20110627
  Transmission Date: 20111222
  Serious: Yes (Other)
  Sender: FDA-Public Use
  Company Number: 2011P1007128

PATIENT
  Age: 77 Year
  Sex: Male
  Weight: 79.3795 kg

DRUGS (14)
  1. CHONDROITIN GLUCOSAMINE [Concomitant]
  2. MULTI-VITAMIN [Concomitant]
  3. CRESTOR [Concomitant]
  4. PRIMIDONE [Concomitant]
  5. FISH OIL [Concomitant]
  6. FLUOROURACIL [Suspect]
     Indication: ACTINIC KERATOSIS
     Dosage: ;BID;TOP
     Route: 061
     Dates: start: 20110515, end: 20110611
  7. FLUOROURACIL [Suspect]
     Indication: ACTINIC KERATOSIS
     Dosage: ;BID;TOP
     Route: 061
     Dates: start: 20110611, end: 20110615
  8. FELODIPINE [Concomitant]
  9. ENALAPRIL MALEATE [Concomitant]
  10. ^DYSTOLIC^ [Concomitant]
  11. ZETIA [Concomitant]
  12. ASPIRIN [Concomitant]
  13. PLAVIX [Concomitant]
  14. HYDROCHLOROTHIAZIDE [Concomitant]

REACTIONS (9)
  - NEOPLASM MALIGNANT [None]
  - ACTINIC KERATOSIS [None]
  - RASH [None]
  - SKIN EXFOLIATION [None]
  - DISEASE PROGRESSION [None]
  - PRURITUS [None]
  - ERYTHEMA [None]
  - SKIN WARM [None]
  - PARAESTHESIA [None]
